FAERS Safety Report 5684741-4 (Version None)
Quarter: 2008Q1

REPORT INFORMATION
  Report Type: 
  Country: None (occurrence: None)
  Receive Date: 20080328
  Receipt Date: 19891018
  Transmission Date: 20080703
  Serious: Yes (Death, Hospitalization, Disabling)
  Sender: FDA-Public Use
  Company Number: BE-ROCHE-12430

PATIENT
  Age: 13 Month
  Sex: Female
  Weight: 6.6 kg

DRUGS (8)
  1. CYMEVENE [Suspect]
     Indication: CYTOMEGALOVIRUS INFECTION
     Route: 042
     Dates: start: 19890912, end: 19890917
  2. CYMEVENE [Suspect]
     Route: 042
     Dates: start: 19890714, end: 19890727
  3. ORTHOCLONE OKT3 [Concomitant]
     Route: 042
     Dates: start: 19890622, end: 19890630
  4. STEROIDS NOS [Concomitant]
     Route: 042
  5. ATGAM [Concomitant]
     Route: 042
     Dates: start: 19890828, end: 19890901
  6. IMIPENEM [Concomitant]
     Route: 042
     Dates: start: 19890913, end: 19890918
  7. AZATHIOPRINE [Concomitant]
     Route: 042
     Dates: start: 19890610, end: 19890830
  8. ACYCLOVIR [Concomitant]
     Route: 042
     Dates: start: 19890609, end: 19890909

REACTIONS (4)
  - BONE MARROW FAILURE [None]
  - ENCEPHALITIS [None]
  - NEUTROPENIA [None]
  - THROMBOCYTOPENIA [None]
